FAERS Safety Report 19316056 (Version 7)
Quarter: 2022Q1

REPORT INFORMATION
  Report Type: Report from Study
  Country: MX (occurrence: MX)
  Receive Date: 20210527
  Receipt Date: 20220117
  Transmission Date: 20220424
  Serious: Yes (Disabling, Other)
  Sender: FDA-Public Use
  Company Number: NVSC2021MX115710

PATIENT
  Age: 33 Year
  Sex: Female
  Weight: 56 kg

DRUGS (2)
  1. GILENYA [Suspect]
     Active Substance: FINGOLIMOD HYDROCHLORIDE
     Indication: Multiple sclerosis
     Dosage: 0.5 MG, QD
     Route: 048
     Dates: start: 201607, end: 202109
  2. GILENYA [Suspect]
     Active Substance: FINGOLIMOD HYDROCHLORIDE
     Dosage: 0.5 MG, QD
     Route: 048
     Dates: start: 20211217, end: 20220109

REACTIONS (22)
  - Gait disturbance [Recovering/Resolving]
  - Fatigue [Recovering/Resolving]
  - Amnesia [Not Recovered/Not Resolved]
  - Arthralgia [Recovering/Resolving]
  - SARS-CoV-2 test positive [Recovering/Resolving]
  - Fall [Recovered/Resolved with Sequelae]
  - Anosmia [Recovering/Resolving]
  - Emotional distress [Unknown]
  - Oropharyngeal pain [Recovering/Resolving]
  - Myopathy [Recovering/Resolving]
  - Pyrexia [Unknown]
  - Rhinorrhoea [Unknown]
  - Influenza [Recovering/Resolving]
  - Cough [Recovering/Resolving]
  - Arthralgia [Recovering/Resolving]
  - Anxiety [Recovering/Resolving]
  - Insomnia [Recovering/Resolving]
  - Chest pain [Recovering/Resolving]
  - Pain in extremity [Recovering/Resolving]
  - Asthenia [Recovering/Resolving]
  - Headache [Recovering/Resolving]
  - Back pain [Recovering/Resolving]

NARRATIVE: CASE EVENT DATE: 20210301
